FAERS Safety Report 10178748 (Version 2)
Quarter: 2014Q2

REPORT INFORMATION
  Report Type: Report from Study
  Country: BR (occurrence: BR)
  Receive Date: 20140519
  Receipt Date: 20140519
  Transmission Date: 20141212
  Serious: Yes (Death, Hospitalization, Other)
  Sender: FDA-Public Use
  Company Number: PHHY2014BR042813

PATIENT
  Age: 88 Year
  Sex: Male

DRUGS (8)
  1. DIOVAN HCT [Suspect]
     Indication: HYPERTENSION
     Dosage: 1 DF, (320 MG VALSA/12.5 MG AMLO) DAILY IN THE MORNING
     Route: 048
  2. LOSARTAN [Suspect]
     Indication: HYPERTENSION
     Dosage: 2 DF (50 MG), AT NIGHT
     Route: 048
  3. LEVOID [Concomitant]
     Indication: HYPERTENSION
     Dosage: UNK UKN, UNK
  4. SIMVASTATIN [Concomitant]
     Indication: ANTICOAGULANT THERAPY
     Dosage: UNK UKN, UNK
  5. NEO FOLICO [Concomitant]
     Indication: ANAEMIA
     Dosage: UNK UKN, UNK
     Dates: start: 200310
  6. XARELTO [Concomitant]
     Indication: THYROID DISORDER
     Dosage: UNK UKN, UNK
     Dates: start: 200310
  7. ACETYLSALICYLIC ACID [Concomitant]
     Indication: ANTICOAGULANT THERAPY
     Dosage: UNK UKN, UNK
  8. BENERVA [Concomitant]
     Indication: LIMB DISCOMFORT
     Dosage: UNK UKN, UNK

REACTIONS (12)
  - Death [Fatal]
  - Blood pressure fluctuation [Recovering/Resolving]
  - Renal impairment [Recovering/Resolving]
  - Head injury [Recovering/Resolving]
  - Thrombosis [Recovering/Resolving]
  - Convulsion [Recovering/Resolving]
  - Blood pressure increased [Recovering/Resolving]
  - Ischaemia [Recovering/Resolving]
  - Loss of consciousness [Recovering/Resolving]
  - Arrhythmia [Recovering/Resolving]
  - Pollakiuria [Recovering/Resolving]
  - Dehydration [Recovering/Resolving]
